FAERS Safety Report 20724376 (Version 1)
Quarter: 2022Q2

REPORT INFORMATION
  Report Type: Spontaneous
  Country: BR (occurrence: BR)
  Receive Date: 20220419
  Receipt Date: 20220419
  Transmission Date: 20220721
  Serious: Yes (Other)
  Sender: FDA-Public Use
  Company Number: BR-PFIZER INC-202101766126

PATIENT
  Age: 58 Year
  Sex: Female

DRUGS (1)
  1. DIABINESE [Suspect]
     Active Substance: CHLORPROPAMIDE
     Indication: Diabetes insipidus
     Dosage: UNK
     Dates: start: 1972

REACTIONS (3)
  - Diabetic metabolic decompensation [Unknown]
  - Blood pressure increased [Unknown]
  - Off label use [Unknown]
